FAERS Safety Report 23037265 (Version 7)
Quarter: 2024Q1

REPORT INFORMATION
  Report Type: Report from Study
  Country: US (occurrence: US)
  Receive Date: 20231006
  Receipt Date: 20240312
  Transmission Date: 20240410
  Serious: Yes (Hospitalization, Other)
  Sender: FDA-Public Use
  Company Number: US-ACADIA PHARMACEUTICALS INC.-ACA-2023-TRF-004018

PATIENT
  Age: 32 Year
  Sex: Male

DRUGS (13)
  1. DAYBUE [Suspect]
     Active Substance: TROFINETIDE
     Indication: Rett syndrome
     Dosage: 50 MILLILITER, BID
     Dates: start: 202309
  2. DAYBUE [Suspect]
     Active Substance: TROFINETIDE
     Dosage: 25 MILLILITER, BID
     Dates: start: 20230917, end: 20230923
  3. DAYBUE [Suspect]
     Active Substance: TROFINETIDE
     Dosage: 12.5 MILLILITER, BID
     Dates: start: 20231101
  4. DAYBUE [Suspect]
     Active Substance: TROFINETIDE
     Dosage: 25 MILLITRE,BID
  5. DAYBUE [Suspect]
     Active Substance: TROFINETIDE
     Dosage: 12.5 MILLILITRE,BID
  6. DAYBUE [Suspect]
     Active Substance: TROFINETIDE
     Dosage: 50 MILLILITER, BID
  7. DAYBUE [Suspect]
     Active Substance: TROFINETIDE
     Dosage: 50 MILLILITER, BID
  8. DIAZEPAM [Concomitant]
     Active Substance: DIAZEPAM
     Dosage: 3 MILLILITER, TID (5MG/5ML)
  9. LACOSAMIDE [Concomitant]
     Active Substance: LACOSAMIDE
     Dosage: 10 MILLILITER, BID
  10. CETIRIZINE [Concomitant]
     Active Substance: CETIRIZINE HYDROCHLORIDE
     Dosage: 10 MILLILITER, QD
  11. LEVETIRACETAM [Concomitant]
     Active Substance: LEVETIRACETAM
     Dosage: 10 MILLILITER, BID
  12. LEVOCARNITINE [Concomitant]
     Active Substance: LEVOCARNITINE
     Dosage: 10 MILLILITER, TID
  13. OMEPRAZOLE [Concomitant]
     Active Substance: OMEPRAZOLE
     Dosage: 10 MILLIGRAM, QD

REACTIONS (13)
  - Pneumonia [Unknown]
  - Anal erythema [Unknown]
  - Rash [Recovering/Resolving]
  - Wound [Not Recovered/Not Resolved]
  - Purpura [Not Recovered/Not Resolved]
  - Fungal infection [Not Recovered/Not Resolved]
  - Skin laceration [Recovered/Resolved]
  - Underdose [Not Recovered/Not Resolved]
  - Rash [Recovered/Resolved]
  - Diarrhoea [Not Recovered/Not Resolved]
  - Diarrhoea [Recovered/Resolved]
  - Diarrhoea [Not Recovered/Not Resolved]
  - Diarrhoea [Not Recovered/Not Resolved]

NARRATIVE: CASE EVENT DATE: 20230913
